FAERS Safety Report 8428007-8 (Version None)
Quarter: 2012Q2

REPORT INFORMATION
  Report Type: 
  Country: None (occurrence: None)
  Receive Date: 20120611
  Receipt Date: 20111205
  Transmission Date: 20120825
  Serious: No
  Sender: FDA-Public Use
  Company Number: US-ABBOTT-11P-163-0881099-00

PATIENT
  Sex: Female

DRUGS (6)
  1. ENBREL [Concomitant]
     Indication: PSORIASIS
  2. K-TAB [Suspect]
     Indication: BLOOD POTASSIUM DECREASED
  3. TOLBUTAMIDE [Suspect]
     Indication: HYPERTENSION
  4. CENTRUM [Concomitant]
     Indication: PRODUCT USED FOR UNKNOWN INDICATION
     Dates: end: 20111101
  5. LEVOTHROID [Concomitant]
     Indication: PRODUCT USED FOR UNKNOWN INDICATION
  6. K-TAB [Suspect]
     Indication: PROPHYLAXIS

REACTIONS (13)
  - PSORIASIS [None]
  - MYALGIA [None]
  - ABDOMINAL PAIN UPPER [None]
  - MUSCLE SWELLING [None]
  - EYE SWELLING [None]
  - EYE PRURITUS [None]
  - RASH [None]
  - PAIN [None]
  - BREATH SOUNDS ABNORMAL [None]
  - EUSTACHIAN TUBE DYSFUNCTION [None]
  - SKIN TIGHTNESS [None]
  - DIZZINESS [None]
  - PRURITUS GENERALISED [None]
